FAERS Safety Report 5280844-7 (Version None)
Quarter: 2007Q1

REPORT INFORMATION
  Report Type: 
  Country: None (occurrence: None)
  Receive Date: 20070329
  Receipt Date: 20070319
  Transmission Date: 20070707
  Serious: Yes (Other)
  Sender: FDA-Public Use
  Company Number: US-PFIZER INC-2007022668

PATIENT
  Sex: Male
  Weight: 88.5 kg

DRUGS (2)
  1. LYRICA [Suspect]
     Indication: CONVULSION
  2. LIPITOR [Concomitant]

REACTIONS (4)
  - DRY MOUTH [None]
  - GRAND MAL CONVULSION [None]
  - OCULAR HYPERAEMIA [None]
  - PERSONALITY CHANGE [None]
